FAERS Safety Report 6998287-4 (Version None)
Quarter: 2010Q3

REPORT INFORMATION
  Report Type: 
  Country: None (occurrence: None)
  Receive Date: 20100920
  Receipt Date: 20090818
  Transmission Date: 20110219
  Serious: No
  Sender: FDA-Public Use
  Company Number: US-ASTRAZENECA-2009SE06507

PATIENT
  Age: 40 Year
  Sex: Male
  Weight: 73.8 kg

DRUGS (2)
  1. SEROQUEL [Suspect]
     Indication: BIPOLAR DISORDER
     Route: 048
     Dates: start: 20090727, end: 20090729
  2. LUNESTA [Concomitant]
     Indication: INSOMNIA

REACTIONS (1)
  - LOSS OF CONSCIOUSNESS [None]
